FAERS Safety Report 5521147-2 (Version None)
Quarter: 2007Q4

REPORT INFORMATION
  Report Type: 
  Country: None (occurrence: None)
  Receive Date: 20071119
  Receipt Date: 20071108
  Transmission Date: 20080405
  Serious: Yes (Other)
  Sender: FDA-Public Use
  Company Number: US-AVENTIS-200717937US

PATIENT
  Sex: Female
  Weight: 63.63 kg

DRUGS (12)
  1. LANTUS [Suspect]
     Dosage: DOSE: UNK
     Route: 051
     Dates: end: 20071001
  2. LANTUS [Suspect]
     Route: 051
     Dates: start: 20071001
  3. REBIF [Suspect]
     Indication: MULTIPLE SCLEROSIS
     Dosage: DOSE: 44
     Route: 058
     Dates: start: 20070508
  4. SOLU-MEDROL [Suspect]
     Dosage: DOSE: UNK
     Route: 042
     Dates: start: 20070929, end: 20071003
  5. METFORMIN HYDROCHLORIDE [Concomitant]
     Dosage: DOSE: UNK
  6. ADDERALL 10 [Concomitant]
     Indication: FATIGUE
     Dosage: DOSE: UNK
  7. AMBIEN [Concomitant]
     Dosage: DOSE: UNK
  8. REGLAN                             /00041901/ [Concomitant]
     Dosage: DOSE: UNK
  9. MIRTAZAPINE [Concomitant]
     Indication: DEPRESSION
     Dosage: DOSE: UNK
  10. WELLBUTRIN [Concomitant]
     Indication: DEPRESSION
     Dosage: DOSE: UNK
  11. TEMAZEPAM [Concomitant]
     Dosage: DOSE: UNK
  12. NOVOLOG [Concomitant]
     Dosage: FREQUENCY: BEFORE MEALS
     Route: 051

REACTIONS (7)
  - BLOOD GLUCOSE FLUCTUATION [None]
  - HYPOGLYCAEMIC SEIZURE [None]
  - INJECTION SITE IRRITATION [None]
  - INJECTION SITE PAIN [None]
  - INJECTION SITE REACTION [None]
  - MULTIPLE SCLEROSIS RELAPSE [None]
  - OVERDOSE [None]
